FAERS Safety Report 7323568-4 (Version None)
Quarter: 2011Q1

REPORT INFORMATION
  Report Type: 
  Country: None (occurrence: None)
  Receive Date: 20110301
  Receipt Date: 20110221
  Transmission Date: 20110831
  Serious: Yes (Life-Threatening, Hospitalization)
  Sender: FDA-Public Use
  Company Number: RO-ROCHE-760918

PATIENT
  Sex: Male
  Weight: 70 kg

DRUGS (1)
  1. BEVACIZUMAB [Suspect]
     Route: 042
     Dates: start: 20090901, end: 20110101

REACTIONS (2)
  - CARDIOGENIC SHOCK [None]
  - ACUTE MYOCARDIAL INFARCTION [None]
